FAERS Safety Report 7466303-1 (Version None)
Quarter: 2011Q2

REPORT INFORMATION
  Report Type: 
  Country: None (occurrence: None)
  Receive Date: 20110428
  Receipt Date: 20110413
  Transmission Date: 20111010
  Serious: Yes (Hospitalization)
  Sender: FDA-Public Use
  Company Number: LEO-2011-00218

PATIENT
  Age: 40 Year
  Sex: Male
  Weight: 61 kg

DRUGS (4)
  1. INNOHEP [Suspect]
     Indication: EMBOLISM VENOUS
     Dosage: 11000 IU (11000 IU, 1 IN 1 D), SUBCUTANEOUS
     Route: 058
     Dates: start: 20101202, end: 20101209
  2. WARFARIN SODIUM [Suspect]
     Indication: EMBOLISM VENOUS
     Dosage: 2.5 MG (2.5 MG, 1 IN 1 D), ORAL; 5 MG, 1 IN 1 D), ORAL
     Route: 048
     Dates: start: 20101202, end: 20110220
  3. PACLITAXEL [Concomitant]
  4. CARBOPLATIN [Concomitant]

REACTIONS (12)
  - HEADACHE [None]
  - TRANSVERSE SINUS THROMBOSIS [None]
  - INTRACRANIAL VENOUS SINUS THROMBOSIS [None]
  - METASTASES TO CENTRAL NERVOUS SYSTEM [None]
  - HAEMORRHAGE INTRACRANIAL [None]
  - TREATMENT FAILURE [None]
  - DIARRHOEA [None]
  - LOWER RESPIRATORY TRACT INFECTION [None]
  - FACIAL PARESIS [None]
  - DEPRESSED LEVEL OF CONSCIOUSNESS [None]
  - SUPERIOR SAGITTAL SINUS THROMBOSIS [None]
  - CONVULSION [None]
